FAERS Safety Report 11302803 (Version 1)
Quarter: 2015Q3

REPORT INFORMATION
  Report Type: Spontaneous
  Country: US (occurrence: US)
  Receive Date: 20150723
  Receipt Date: 20150723
  Transmission Date: 20151125
  Serious: Yes (Other)
  Sender: FDA-Public Use
  Company Number: US-SA-2015SA105029

PATIENT

DRUGS (1)
  1. AUBAGIO [Suspect]
     Active Substance: TERIFLUNOMIDE
     Route: 065

REACTIONS (6)
  - Alopecia [Unknown]
  - Ear infection [Unknown]
  - Bronchitis [Unknown]
  - Malaise [Unknown]
  - Upper respiratory tract infection [Unknown]
  - Pneumonia [Unknown]
